FAERS Safety Report 19488861 (Version 4)
Quarter: 2021Q3

REPORT INFORMATION
  Report Type: Spontaneous
  Country: DO (occurrence: DO)
  Receive Date: 20210702
  Receipt Date: 20210723
  Transmission Date: 20211014
  Serious: Yes (Other)
  Sender: FDA-Public Use
  Company Number: DO-ROCHE-2860655

PATIENT
  Age: 39 Year
  Sex: Female
  Weight: 73 kg

DRUGS (12)
  1. VINCRISTINE [Suspect]
     Active Substance: VINCRISTINE
     Indication: LYMPHOMA
     Dosage: DOSE AND FREQUENCY WERE NOT REPORTED ? 4 CYCLES
     Route: 065
     Dates: start: 20190701, end: 20190901
  2. ONCOVIN [Concomitant]
     Active Substance: VINCRISTINE SULFATE
     Indication: DIFFUSE LARGE B-CELL LYMPHOMA
     Dosage: DOSE AND FREQUENCY WERE NOT REPORTED ? 8 CYCLES
     Dates: start: 20161101, end: 20170301
  3. ETOPOSIDE. [Concomitant]
     Active Substance: ETOPOSIDE
     Indication: LYMPHOMA
     Dosage: DOSE AND FREQUENCY WERE NOT REPORTED ? 4 CYCLES
     Dates: start: 20190701, end: 20190901
  4. PREDNISONE. [Suspect]
     Active Substance: PREDNISONE
     Indication: LYMPHOMA
     Dosage: DOSE AND FREQUENCY WERE NOT REPORTED ? 4 CYCLES
     Route: 042
     Dates: start: 20190701, end: 20190901
  5. CYCLOPHOSPHAMIDE. [Suspect]
     Active Substance: CYCLOPHOSPHAMIDE
     Indication: DIFFUSE LARGE B-CELL LYMPHOMA
     Dosage: DOSE AND FREQUENCY WERE NOT REPORTED ? 8 CYCLES
     Route: 042
     Dates: start: 20161101, end: 20170301
  6. BENDAMUSTINE [Concomitant]
     Active Substance: BENDAMUSTINE
     Indication: LYMPHOMA
     Dosage: DOSE AND FREQUENCY WERE NOT REPORTED ? 4 CYCLES
     Dates: start: 20180601, end: 20180801
  7. RITUXIMAB. [Suspect]
     Active Substance: RITUXIMAB
     Indication: DIFFUSE LARGE B-CELL LYMPHOMA
     Dosage: DOSE AND FREQUENCY WERE NOT REPORTED ? 8 CYCLES
     Route: 065
     Dates: start: 20161101, end: 20170301
  8. PREDNISONE. [Suspect]
     Active Substance: PREDNISONE
     Indication: DIFFUSE LARGE B-CELL LYMPHOMA
     Dosage: DOSE AND FREQUENCY WERE NOT REPORTED ? 8 CYCLES
     Route: 042
     Dates: start: 20161101, end: 20170301
  9. CYCLOPHOSPHAMIDE. [Suspect]
     Active Substance: CYCLOPHOSPHAMIDE
     Indication: LYMPHOMA
     Dosage: DOSE AND FREQUENCY WERE NOT REPORTED ? 4 CYCLES
     Route: 042
     Dates: start: 20190701, end: 20190901
  10. RITUXIMAB. [Suspect]
     Active Substance: RITUXIMAB
     Indication: LYMPHOMA
     Dosage: DOSE AND FREQUENCY WERE NOT REPORTED ? 4 CYCLES
     Route: 065
     Dates: start: 20180601, end: 20180801
  11. RITUXIMAB. [Suspect]
     Active Substance: RITUXIMAB
     Dosage: DOSE AND FREQUENCY WERE NOT REPORTED ? 4 CYCLES
     Route: 065
     Dates: start: 20190701, end: 20190901
  12. HYDROXYDAUNORUBICIN [Suspect]
     Active Substance: DOXORUBICIN
     Indication: DIFFUSE LARGE B-CELL LYMPHOMA
     Dosage: DOSE AND FREQUENCY WERE NOT REPORTED ? 8 CYCLES
     Route: 042
     Dates: start: 20161101, end: 20170301

REACTIONS (3)
  - Cardiac failure [Recovered/Resolved]
  - Dyspnoea [Recovered/Resolved]
  - COVID-19 [Unknown]

NARRATIVE: CASE EVENT DATE: 201704
